FAERS Safety Report 8361469-3 (Version None)
Quarter: 2012Q2

REPORT INFORMATION
  Report Type: 
  Country: None (occurrence: None)
  Receive Date: 20120515
  Receipt Date: 20120502
  Transmission Date: 20120825
  Serious: Yes (Other)
  Sender: FDA-Public Use
  Company Number: BR-AMGEN-BRASP2012014204

PATIENT
  Age: 69 Year
  Sex: Male
  Weight: 80 kg

DRUGS (5)
  1. SIMVASTATIN [Concomitant]
     Indication: BLOOD CHOLESTEROL INCREASED
     Dosage: 20 MG, 1X/DAY
     Dates: start: 20090101
  2. PRADAXA [Concomitant]
     Indication: THROMBOSIS PROPHYLAXIS
     Dosage: UNK
  3. ENBREL [Suspect]
     Indication: PSORIASIS
     Dosage: 50 MG, ONCE WEEKLY (ON FRIDAY)
     Route: 058
     Dates: start: 20120224
  4. ENBREL [Suspect]
     Indication: PSORIATIC ARTHROPATHY
     Dosage: UNK
     Route: 058
  5. ACETAMINOPHEN [Concomitant]
     Indication: PAIN
     Dosage: UNK
     Dates: start: 20120501

REACTIONS (5)
  - FALL [None]
  - FIBULA FRACTURE [None]
  - TIBIA FRACTURE [None]
  - URINE COLOUR ABNORMAL [None]
  - DRY EYE [None]
